FAERS Safety Report 18146530 (Version 2)
Quarter: 2020Q3

REPORT INFORMATION
  Report Type: Report from Study
  Country: US (occurrence: US)
  Receive Date: 20200813
  Receipt Date: 20200821
  Transmission Date: 20201104
  Serious: Yes (Hospitalization)
  Sender: FDA-Public Use
  Company Number: US-GLAXOSMITHKLINE-US2020142726

PATIENT
  Age: 69 Year
  Sex: Male

DRUGS (2)
  1. NIROGACESTAT (NON?GSK) [Suspect]
     Active Substance: NIROGACESTAT
     Indication: PLASMA CELL MYELOMA
     Dosage: 1 DF (TABLET), BID
     Route: 048
     Dates: start: 20200625, end: 20200715
  2. BELANTAMAB MAFODOTIN. [Suspect]
     Active Substance: BELANTAMAB MAFODOTIN
     Indication: PLASMA CELL MYELOMA
     Dosage: 96 MG, CYC
     Dates: start: 20200625

REACTIONS (1)
  - Infusion related reaction [Recovered/Resolved]

NARRATIVE: CASE EVENT DATE: 20200716
